FAERS Safety Report 18804131 (Version 2)
Quarter: 2021Q4

REPORT INFORMATION
  Report Type: Spontaneous
  Country: JP (occurrence: JP)
  Receive Date: 20210128
  Receipt Date: 20211001
  Transmission Date: 20220303
  Serious: Yes (Hospitalization)
  Sender: FDA-Public Use
  Company Number: JP-ELI_LILLY_AND_COMPANY-JP202101010295

PATIENT
  Age: 84 Year
  Sex: Female
  Weight: 42.8 kg

DRUGS (14)
  1. ADCIRCA [Suspect]
     Active Substance: TADALAFIL
     Indication: Pulmonary arterial hypertension
     Dosage: 40 MG, DAILY
     Route: 048
     Dates: end: 20200130
  2. UPTRAVI [Suspect]
     Active Substance: SELEXIPAG
     Indication: Pulmonary arterial hypertension
     Dosage: 0.2 MG, BID
     Route: 048
     Dates: start: 20181207, end: 20200130
  3. OPSUMIT [Concomitant]
     Active Substance: MACITENTAN
     Indication: Pulmonary arterial hypertension
     Dosage: 10 MG, UNKNOWN
     Dates: end: 20200130
  4. MAGNESIUM OXIDE [Concomitant]
     Active Substance: MAGNESIUM OXIDE
     Indication: Prophylaxis
     Dosage: 500 MG, UNKNOWN
     Dates: end: 20200130
  5. SPIRONOLACTONE [Concomitant]
     Active Substance: SPIRONOLACTONE
     Indication: Product used for unknown indication
     Dosage: 25 MG, UNKNOWN
     Dates: end: 20200130
  6. FUROSEMIDE [Concomitant]
     Active Substance: FUROSEMIDE
     Indication: Product used for unknown indication
     Dosage: 40 MG, UNKNOWN
     Dates: end: 20200130
  7. VONOPRAZAN FUMARATE [Concomitant]
     Active Substance: VONOPRAZAN FUMARATE
     Indication: Prophylaxis
     Dosage: 10 MG, UNKNOWN
     Dates: end: 20200130
  8. MONTELUKAST [Concomitant]
     Active Substance: MONTELUKAST SODIUM
     Indication: Prophylaxis
     Dosage: 10 MG, UNKNOWN
     Dates: end: 20200130
  9. MEMANTINE HYDROCHLORIDE [Concomitant]
     Active Substance: MEMANTINE HYDROCHLORIDE
     Indication: Prophylaxis
     Dosage: 20 MG, UNKNOWN
  10. AZOSEMIDE [Concomitant]
     Active Substance: AZOSEMIDE
     Indication: Product used for unknown indication
     Dosage: 60 MG, UNKNOWN
  11. ELDECALCITOL [Concomitant]
     Active Substance: ELDECALCITOL
     Indication: Prophylaxis
     Dosage: .75 UG, UNKNOWN
     Dates: end: 20200130
  12. LIMAPROST [Concomitant]
     Active Substance: LIMAPROST
     Indication: Prophylaxis
     Dosage: 10 UG, UNKNOWN
     Dates: end: 20200130
  13. RILMAZAFONE HYDROCHLORIDE [Concomitant]
     Active Substance: RILMAZAFONE HYDROCHLORIDE
     Indication: Prophylaxis
     Dosage: 1 MG, UNKNOWN
     Dates: end: 20200130
  14. SENNOSIDE A [Concomitant]
     Active Substance: SENNOSIDE A
     Indication: Prophylaxis
     Dosage: 12 MG, UNKNOWN
     Dates: end: 20200130

REACTIONS (1)
  - Right ventricular failure [Recovered/Resolved]

NARRATIVE: CASE EVENT DATE: 20200122
